FAERS Safety Report 7035604-3 (Version None)
Quarter: 2010Q4

REPORT INFORMATION
  Report Type: 
  Country: None (occurrence: None)
  Receive Date: 20101007
  Receipt Date: 20101007
  Transmission Date: 20110411
  Serious: Yes (Other)
  Sender: FDA-Public Use
  Company Number: None

PATIENT
  Age: 57 Year
  Sex: Female
  Weight: 58.9676 kg

DRUGS (1)
  1. RECLAST [Suspect]
     Indication: OSTEOPOROSIS
     Dates: start: 20090930, end: 20090930

REACTIONS (9)
  - ASTHENIA [None]
  - BONE PAIN [None]
  - CHILLS [None]
  - LYMPHADENOPATHY [None]
  - MYALGIA [None]
  - PAIN [None]
  - PYREXIA [None]
  - TOOTH LOSS [None]
  - VISION BLURRED [None]
